FAERS Safety Report 5358201-4 (Version None)
Quarter: 2007Q2

REPORT INFORMATION
  Report Type: 
  Country: None (occurrence: None)
  Receive Date: 20070530
  Receipt Date: 20061006
  Transmission Date: 20071010
  Serious: Yes (Hospitalization, Other)
  Sender: FDA-Public Use
  Company Number: US200605002271

PATIENT
  Age: 33 Year
  Sex: Male
  Weight: 113.8 kg

DRUGS (6)
  1. ZYPREXA [Suspect]
     Dosage: SEE IMAGE
     Dates: end: 20051201
  2. ZYPREXA [Suspect]
     Dosage: SEE IMAGE
     Dates: start: 19960101
  3. ZIPRASIDONE HCL [Concomitant]
  4. PAROXETINE [Concomitant]
  5. ATENOLOL [Concomitant]
  6. HYDROCHLOROTHIAZIDE (HYDROXHLOROTHIAZIDE) [Concomitant]

REACTIONS (3)
  - DIABETES MELLITUS [None]
  - DIABETIC COMA [None]
  - DIABETIC KETOACIDOSIS [None]
